FAERS Safety Report 7901640-5 (Version None)
Quarter: 2011Q4

REPORT INFORMATION
  Report Type: 
  Country: None (occurrence: None)
  Receive Date: 20111108
  Receipt Date: 20111028
  Transmission Date: 20120403
  Serious: Yes (Death)
  Sender: FDA-Public Use
  Company Number: TW-BAXTER-2011BH034694

PATIENT
  Sex: Female

DRUGS (4)
  1. EXTRANEAL [Suspect]
     Route: 033
     Dates: start: 20090201
  2. DIANEAL [Suspect]
     Route: 033
     Dates: start: 20090201
  3. DIANEAL [Suspect]
     Indication: PERITONEAL DIALYSIS
     Route: 033
     Dates: start: 20090201
  4. EXTRANEAL [Suspect]
     Indication: PERITONEAL DIALYSIS
     Route: 033
     Dates: start: 20090201

REACTIONS (1)
  - DEATH [None]
